FAERS Safety Report 8555893-3 (Version None)
Quarter: 2012Q3

REPORT INFORMATION
  Report Type: 
  Country: None (occurrence: None)
  Receive Date: 20120801
  Receipt Date: 20120724
  Transmission Date: 20120928
  Serious: No
  Sender: FDA-Public Use
  Company Number: US-BIOGENIDEC-2012BI021793

PATIENT
  Sex: Female

DRUGS (3)
  1. AVONEX [Suspect]
     Route: 030
     Dates: start: 20100801
  2. AVONEX [Suspect]
     Route: 030
     Dates: start: 20040728
  3. AVONEX [Suspect]
     Indication: MULTIPLE SCLEROSIS
     Route: 030
     Dates: start: 19990503

REACTIONS (2)
  - MULTIPLE SCLEROSIS RELAPSE [None]
  - STRESS [None]
